FAERS Safety Report 14270824 (Version 1)
Quarter: 2017Q4

REPORT INFORMATION
  Report Type: Spontaneous
  Country: US (occurrence: US)
  Receive Date: 20171211
  Receipt Date: 20171211
  Transmission Date: 20180321
  Serious: Yes (Death, Other)
  Sender: FDA-Public Use
  Company Number: US-OTSUKA-KJ20035085

PATIENT
  Age: 42 Year
  Sex: Female

DRUGS (14)
  1. ZYPREXA [Concomitant]
     Active Substance: OLANZAPINE
     Indication: PRODUCT USED FOR UNKNOWN INDICATION
     Dosage: UNK
     Route: 065
     Dates: start: 20030707, end: 20030721
  2. AMBIEN [Concomitant]
     Active Substance: ZOLPIDEM TARTRATE
     Indication: PRODUCT USED FOR UNKNOWN INDICATION
     Dosage: UNK
     Route: 065
     Dates: start: 20030707, end: 20030831
  3. LEXAPRO [Concomitant]
     Active Substance: ESCITALOPRAM OXALATE
     Indication: PRODUCT USED FOR UNKNOWN INDICATION
     Dosage: 1-2 PILLS/DAY FROM 07-JUL-03, 10-20 MG/DAY FROM 22-JUL-03, INCREASED TO 20 MG/DAY ON 11-AUG-03.
     Route: 065
     Dates: start: 20030811
  4. LEXAPRO [Concomitant]
     Active Substance: ESCITALOPRAM OXALATE
     Dosage: UNK
     Route: 065
     Dates: start: 20030722, end: 20030810
  5. LEXAPRO [Concomitant]
     Active Substance: ESCITALOPRAM OXALATE
     Dosage: UNK
     Route: 065
     Dates: start: 20030811, end: 20030831
  6. ZYPREXA [Concomitant]
     Active Substance: OLANZAPINE
     Route: 065
     Dates: start: 20030722, end: 20030831
  7. VALIUM [Concomitant]
     Active Substance: DIAZEPAM
     Indication: PRODUCT USED FOR UNKNOWN INDICATION
     Dosage: 10 MG, UNK
     Route: 065
     Dates: start: 20030707, end: 20030831
  8. KLONOPIN [Concomitant]
     Active Substance: CLONAZEPAM
     Indication: PRODUCT USED FOR UNKNOWN INDICATION
     Dosage: 0.5 MG, UNK
     Route: 065
     Dates: start: 20030707, end: 20030811
  9. LEXAPRO [Concomitant]
     Active Substance: ESCITALOPRAM OXALATE
     Indication: PRODUCT USED FOR UNKNOWN INDICATION
     Dosage: UNK
     Route: 065
     Dates: start: 20030707, end: 20030721
  10. ZOLPIDEM [Concomitant]
     Active Substance: ZOLPIDEM\ZOLPIDEM TARTRATE
     Indication: PRODUCT USED FOR UNKNOWN INDICATION
     Dosage: 10 MG, QD
     Route: 048
     Dates: start: 20030707
  11. OLANZAPINE. [Concomitant]
     Active Substance: OLANZAPINE
     Indication: PRODUCT USED FOR UNKNOWN INDICATION
     Dosage: INITIAL DOSE: 10 MG/DAY FROM 07-JUL-2003, INCREASED TO 15 MG/DAY ON 22-JUL-2003.
     Route: 048
     Dates: start: 20030722
  12. ABILIFY [Suspect]
     Active Substance: ARIPIPRAZOLE
     Indication: BIPOLAR DISORDER
     Dosage: 15 MG, UNK
     Route: 048
     Dates: start: 20030707, end: 20030831
  13. TRAZODONE HYDROCHLORIDE. [Concomitant]
     Active Substance: TRAZODONE HYDROCHLORIDE
     Indication: PRODUCT USED FOR UNKNOWN INDICATION
     Dosage: 100 MG, QD
     Route: 065
     Dates: start: 20030811, end: 20030831
  14. CLONAZEPAM. [Concomitant]
     Active Substance: CLONAZEPAM
     Indication: PRODUCT USED FOR UNKNOWN INDICATION
     Dosage: .5 MG, BID
     Route: 065

REACTIONS (7)
  - Mood swings [Fatal]
  - Drug abuser [Fatal]
  - Aggression [Fatal]
  - Arteriosclerosis coronary artery [Fatal]
  - Sleep disorder [Fatal]
  - Depression [Unknown]
  - Drug abuse [Unknown]

NARRATIVE: CASE EVENT DATE: 20030902
